FAERS Safety Report 11156668 (Version 1)
Quarter: 2015Q2

REPORT INFORMATION
  Report Type: Spontaneous
  Country: US (occurrence: None)
  Receive Date: 20150601
  Receipt Date: 20150601
  Transmission Date: 20150821
  Serious: Yes (Disabling)
  Sender: FDA-Public Use
  Company Number: None

PATIENT
  Age: 73 Year
  Sex: Female
  Weight: 59.88 kg

DRUGS (7)
  1. LEVOTHYROXINE [Concomitant]
     Active Substance: LEVOTHYROXINE
  2. GABAPENTIN. [Concomitant]
     Active Substance: GABAPENTIN
  3. HYDROXYCHLOROQUINE [Concomitant]
     Active Substance: HYDROXYCHLOROQUINE
  4. VITAMIN D [Concomitant]
     Active Substance: CHOLECALCIFEROL
  5. AMLODIPINE [Concomitant]
     Active Substance: AMLODIPINE BESYLATE
  6. TRAMADOL [Suspect]
     Active Substance: TRAMADOL
     Indication: ARTHRALGIA
     Dosage: 1 PILL AS NEEDED  TAKEN BY MOUTH?DURATION: ONCE
     Route: 048
  7. MAGOX [Concomitant]

REACTIONS (6)
  - Dizziness [None]
  - Headache [None]
  - Vertigo [None]
  - Gait disturbance [None]
  - Hypotension [None]
  - Nausea [None]

NARRATIVE: CASE EVENT DATE: 20150528
